FAERS Safety Report 7672172-7 (Version None)
Quarter: 2011Q3

REPORT INFORMATION
  Report Type: 
  Country: None (occurrence: None)
  Receive Date: 20110809
  Receipt Date: 20110803
  Transmission Date: 20111222
  Serious: Yes (Death)
  Sender: FDA-Public Use
  Company Number: PHHY2011CH65278

PATIENT
  Age: 59 Year
  Sex: Male

DRUGS (1)
  1. IMATINIB MESYLATE [Suspect]
     Dosage: 400 MG, UNK
     Dates: start: 20071001

REACTIONS (2)
  - DRUG INEFFECTIVE [None]
  - DEATH [None]
